FAERS Safety Report 20077162 (Version 2)
Quarter: 2022Q1

REPORT INFORMATION
  Report Type: Report from Study
  Country: US (occurrence: US)
  Receive Date: 20211116
  Receipt Date: 20220215
  Transmission Date: 20220424
  Serious: No
  Sender: FDA-Public Use
  Company Number: US-TG THERAPEUTICS INC.-TGT002162

PATIENT
  Age: 80 Year
  Sex: Female

DRUGS (3)
  1. UMBRALISIB [Suspect]
     Active Substance: UMBRALISIB
     Indication: Follicular lymphoma
     Dosage: 800 MILLIGRAM, QD, AFTER BREAKFAST
     Route: 048
     Dates: start: 20210820, end: 202112
  2. UMBRALISIB [Suspect]
     Active Substance: UMBRALISIB
     Indication: Non-Hodgkin^s lymphoma
  3. ASPIRIN [Concomitant]
     Active Substance: ASPIRIN
     Indication: Product used for unknown indication

REACTIONS (9)
  - Dizziness [Not Recovered/Not Resolved]
  - Illness [Unknown]
  - Insomnia [Unknown]
  - Nausea [Recovering/Resolving]
  - Urinary tract infection [Unknown]
  - Vomiting [Recovered/Resolved]
  - Disease progression [Unknown]
  - Product dose omission issue [Unknown]
  - Drug ineffective [Unknown]

NARRATIVE: CASE EVENT DATE: 20211014
